FAERS Safety Report 25785225 (Version 1)
Quarter: 2025Q3

REPORT INFORMATION
  Report Type: Spontaneous
  Country: US (occurrence: US)
  Receive Date: 20250910
  Receipt Date: 20250910
  Transmission Date: 20251020
  Serious: Yes (Other)
  Sender: ORGANON
  Company Number: US-ORGANON-O2509USA000606

PATIENT
  Sex: Female

DRUGS (1)
  1. NEXPLANON [Suspect]
     Active Substance: ETONOGESTREL
     Route: 059
     Dates: start: 20241107, end: 202508

REACTIONS (4)
  - Heavy menstrual bleeding [Recovering/Resolving]
  - Weight increased [Recovering/Resolving]
  - Depression [Recovering/Resolving]
  - Mood altered [Recovering/Resolving]
